FAERS Safety Report 5679486-0 (Version None)
Quarter: 2008Q1

REPORT INFORMATION
  Report Type: 
  Country: None (occurrence: None)
  Receive Date: 20080321
  Receipt Date: 20080312
  Transmission Date: 20080703
  Serious: Yes (Death, Other)
  Sender: FDA-Public Use
  Company Number: 2007-02339

PATIENT
  Age: 74 Year
  Sex: Male
  Weight: 62 kg

DRUGS (15)
  1. VELCADE [Suspect]
     Indication: MULTIPLE MYELOMA
     Dosage: 2.00 MG,INTRAVENOUS
     Route: 042
     Dates: start: 20061220, end: 20070717
  2. DEXAMETHASONE TAB [Concomitant]
  3. AMLODIPINE BESYLATE [Concomitant]
  4. URALYT (MAGNESIUM PHOSPHATE,ARNICA EXTRACT,EQUISETUM ARVENSE,SOLIDAGO [Concomitant]
  5. DIFLUCAN [Concomitant]
  6. VALSARTAN [Concomitant]
  7. BAKTAR (SULFAMETHOXAZOLE, TRIMETHOPRIM) [Concomitant]
  8. LAFUTIDINE [Concomitant]
  9. FOSAMAX [Concomitant]
  10. URINORM (BENZBROMARONE) [Concomitant]
  11. SOLU-CORTEF [Concomitant]
  12. ANTHROBIN P (ANTITHROMBIN III) [Concomitant]
  13. GRAN [Concomitant]
  14. PLATELETS [Concomitant]
  15. HUMAN RED BLOOD CELLS [Concomitant]

REACTIONS (8)
  - DECREASED APPETITE [None]
  - DIARRHOEA [None]
  - DISEASE PROGRESSION [None]
  - HYPERURICAEMIA [None]
  - NEUROPATHY PERIPHERAL [None]
  - PYREXIA [None]
  - THROMBOCYTOPENIA [None]
  - TUMOUR LYSIS SYNDROME [None]
